FAERS Safety Report 8312242-3 (Version None)
Quarter: 2012Q2

REPORT INFORMATION
  Report Type: 
  Country: None (occurrence: None)
  Receive Date: 20120425
  Receipt Date: 20120416
  Transmission Date: 20120825
  Serious: Yes (Other)
  Sender: FDA-Public Use
  Company Number: US-ABBOTT-12P-163-0926162-00

PATIENT
  Sex: Female
  Weight: 134.84 kg

DRUGS (9)
  1. ORTHO CYCLEN-28 [Concomitant]
     Indication: PRODUCT USED FOR UNKNOWN INDICATION
     Route: 048
     Dates: start: 20110321, end: 20110617
  2. METHOTREXATE [Concomitant]
     Indication: RHEUMATOID ARTHRITIS
     Route: 048
     Dates: start: 20110321, end: 20110617
  3. CALCIUM [Concomitant]
     Indication: PRODUCT USED FOR UNKNOWN INDICATION
     Route: 048
     Dates: start: 20110801, end: 20111212
  4. HUMIRA [Suspect]
     Indication: RHEUMATOID ARTHRITIS
     Dates: start: 20110321, end: 20110617
  5. DHA [Concomitant]
     Indication: PRODUCT USED FOR UNKNOWN INDICATION
     Dosage: EXPECTRA BRAND
     Route: 048
     Dates: start: 20110617, end: 20111212
  6. ZYRTEC [Concomitant]
     Indication: HYPERSENSITIVITY
     Route: 048
     Dates: start: 20110728, end: 20111025
  7. FLUZONE [Concomitant]
     Indication: PRODUCT USED FOR UNKNOWN INDICATION
     Dosage: DATE PER OB OFFICE
     Route: 050
     Dates: start: 20111020, end: 20111020
  8. MULTI-VITAMINS [Concomitant]
     Indication: PRODUCT USED FOR UNKNOWN INDICATION
     Route: 048
     Dates: start: 20110617, end: 20111212
  9. HUMIRA [Suspect]
     Dates: start: 20111004, end: 20111115

REACTIONS (6)
  - GESTATIONAL DIABETES [None]
  - ABSCESS [None]
  - ABDOMINAL DISCOMFORT [None]
  - UPPER RESPIRATORY TRACT INFECTION [None]
  - GASTROENTERITIS VIRAL [None]
  - GLUCOSE TOLERANCE TEST ABNORMAL [None]
